FAERS Safety Report 24313586 (Version 1)
Quarter: 2024Q3

REPORT INFORMATION
  Report Type: Spontaneous
  Country: BR (occurrence: BR)
  Receive Date: 20240912
  Receipt Date: 20240912
  Transmission Date: 20241017
  Serious: Yes (Hospitalization, Congenital Anomaly)
  Sender: JOHNSON AND JOHNSON
  Company Number: BR-JNJFOC-20240910857

PATIENT
  Sex: Female
  Weight: 1.78 kg

DRUGS (2)
  1. TOPAMAX [Suspect]
     Active Substance: TOPIRAMATE
     Indication: Product used for unknown indication
     Route: 015
  2. CLONAZEPAM [Suspect]
     Active Substance: CLONAZEPAM
     Indication: Product used for unknown indication
     Route: 015

REACTIONS (4)
  - Ear malformation [Unknown]
  - Microsomia [Unknown]
  - Premature baby [Unknown]
  - Foetal exposure during pregnancy [Unknown]
